FAERS Safety Report 9782369 (Version 2)
Quarter: 2014Q1

REPORT INFORMATION
  Report Type: Spontaneous
  Country: JP (occurrence: JP)
  Receive Date: 20131226
  Receipt Date: 20140205
  Transmission Date: 20141002
  Serious: Yes (Other)
  Sender: FDA-Public Use
  Company Number: JP-UCBSA-106713

PATIENT
  Age: 63 Year
  Sex: Male

DRUGS (7)
  1. CIMZIA [Suspect]
     Indication: RHEUMATOID ARTHRITIS
     Dosage: STRENGTH: 200MG
     Route: 058
     Dates: start: 20130711, end: 20131017
  2. CELECOX [Concomitant]
     Route: 048
     Dates: start: 201307
  3. ADALIMUMAB [Concomitant]
     Indication: RHEUMATOID ARTHRITIS
     Dates: start: 201104
  4. ETANERCEPT [Concomitant]
     Dates: start: 201106
  5. ETANERCEPT [Concomitant]
     Dates: start: 201209
  6. ABATACEPT [Concomitant]
     Dates: start: 201207
  7. GOLIMUMAB [Concomitant]
     Dates: start: 201302

REACTIONS (1)
  - Testicular neoplasm [Recovering/Resolving]
